FAERS Safety Report 20532211 (Version 3)
Quarter: 2023Q1

REPORT INFORMATION
  Report Type: Report from Study
  Country: JP (occurrence: JP)
  Receive Date: 20220301
  Receipt Date: 20230307
  Transmission Date: 20230418
  Serious: Yes (Other)
  Sender: FDA-Public Use
  Company Number: JP-ferring-EVA202200197FERRINGPH

PATIENT

DRUGS (4)
  1. DINOPROSTONE [Suspect]
     Active Substance: DINOPROSTONE
     Indication: Induction of cervix ripening
     Dosage: 10 MG, ONCE/SINGLE
     Route: 067
     Dates: start: 20211007, end: 20211007
  2. OXYTOCIN [Concomitant]
     Active Substance: OXYTOCIN
     Indication: Labour induction
     Dosage: 1 TO LESS THAN 5 UNITS
     Route: 065
     Dates: start: 20211007
  3. AMPICILLIN [Concomitant]
     Active Substance: AMPICILLIN
     Indication: Streptococcus test positive
     Route: 065
     Dates: end: 20211011
  4. AMPICILLIN [Concomitant]
     Active Substance: AMPICILLIN
     Indication: Infection prophylaxis

REACTIONS (3)
  - Amniotic cavity infection [Recovered/Resolved]
  - Uterine haemorrhage [Recovered/Resolved]
  - Obstructed labour [Recovered/Resolved]

NARRATIVE: CASE EVENT DATE: 20211007
